FAERS Safety Report 14476020 (Version 2)
Quarter: 2018Q1

REPORT INFORMATION
  Report Type: Spontaneous
  Country: US (occurrence: US)
  Receive Date: 20180201
  Receipt Date: 20180214
  Transmission Date: 20180509
  Serious: Yes (Other)
  Sender: FDA-Public Use
  Company Number: US-TEVA-2018-US-853838

PATIENT
  Age: 65 Year
  Sex: Male

DRUGS (9)
  1. CYCLOPHOSPHAMIDE. [Suspect]
     Active Substance: CYCLOPHOSPHAMIDE
     Indication: BLASTIC PLASMACYTOID DENDRITIC CELL NEOPLASIA
     Dosage: RECEIVED SECOND ROUND IN AUGUST 2015
     Route: 065
     Dates: start: 201508
  2. VINCRISTINE [Suspect]
     Active Substance: VINCRISTINE
     Indication: BLASTIC PLASMACYTOID DENDRITIC CELL NEOPLASIA
     Dosage: RECEIVED SECOND ROUND IN AUGUST 2015
     Route: 065
     Dates: start: 201508
  3. CYCLOPHOSPHAMIDE. [Suspect]
     Active Substance: CYCLOPHOSPHAMIDE
     Indication: BLASTIC PLASMACYTOID DENDRITIC CELL NEOPLASIA
     Dosage: RECEIVED FIRST ROUND IN JULY 2015
     Route: 065
     Dates: start: 201507
  4. PREDNISONE. [Suspect]
     Active Substance: PREDNISONE
     Indication: BLASTIC PLASMACYTOID DENDRITIC CELL NEOPLASIA
     Dosage: RECEIVED FIRST ROUND IN JULY 2015
     Route: 065
     Dates: start: 201507
  5. DOXORUBICIN [Suspect]
     Active Substance: DOXORUBICIN
     Indication: BLASTIC PLASMACYTOID DENDRITIC CELL NEOPLASIA
     Dosage: RECEIVED FIRST ROUND IN JULY 2015
     Route: 065
     Dates: start: 201507
  6. VINCRISTINE [Suspect]
     Active Substance: VINCRISTINE
     Indication: BLASTIC PLASMACYTOID DENDRITIC CELL NEOPLASIA
     Dosage: RECEIVED FIRST ROUND IN JULY 2015
     Route: 065
     Dates: start: 201507
  7. PREDNISONE. [Suspect]
     Active Substance: PREDNISONE
     Indication: BLASTIC PLASMACYTOID DENDRITIC CELL NEOPLASIA
     Dosage: RECEIVED SECOND ROUND IN AUGUST 2015
     Route: 065
     Dates: start: 201508
  8. VENETOCLAX. [Suspect]
     Active Substance: VENETOCLAX
     Indication: BLASTIC PLASMACYTOID DENDRITIC CELL NEOPLASIA
     Dosage: 400MG DAILY
     Route: 048
  9. DOXORUBICIN [Suspect]
     Active Substance: DOXORUBICIN
     Indication: BLASTIC PLASMACYTOID DENDRITIC CELL NEOPLASIA
     Dosage: RECEIVED SECOND ROUND IN AUGUST 2015
     Route: 065
     Dates: start: 201508

REACTIONS (5)
  - Chills [Unknown]
  - Hyperglycaemia [Unknown]
  - Diarrhoea [Unknown]
  - Off label use [Unknown]
  - Drug resistance [Unknown]
